FAERS Safety Report 15306364 (Version 2)
Quarter: 2018Q3

REPORT INFORMATION
  Report Type: Report from Study
  Country: US (occurrence: US)
  Receive Date: 20180822
  Receipt Date: 20180927
  Transmission Date: 20181010
  Serious: Yes (Other)
  Sender: FDA-Public Use
  Company Number: US-PFIZER INC-2018190177

PATIENT
  Age: 55 Year
  Sex: Female

DRUGS (2)
  1. IBRANCE [Suspect]
     Active Substance: PALBOCICLIB
     Indication: BREAST CANCER FEMALE
     Dosage: 125 MG, 1X/DAY
     Route: 048
     Dates: start: 20180423, end: 20180626
  2. IBRANCE [Suspect]
     Active Substance: PALBOCICLIB
     Dosage: 100 MG, CYCLIC (ONCE A DAY, 21 DAYS ON AND 7 DAYS OFF)
     Route: 048
     Dates: start: 20180626, end: 20180909

REACTIONS (20)
  - Oropharyngeal pain [Recovered/Resolved]
  - Vitamin B12 decreased [Unknown]
  - Myalgia [Unknown]
  - Nodule [Recovered/Resolved]
  - Panic attack [Unknown]
  - Vitamin D decreased [Unknown]
  - Fatigue [Unknown]
  - White blood cell count decreased [Unknown]
  - Red blood cell count decreased [Unknown]
  - Arthralgia [Unknown]
  - Increased tendency to bruise [Unknown]
  - Neuropathy peripheral [Unknown]
  - Pruritus [Unknown]
  - Pyrexia [Recovered/Resolved]
  - Anxiety [Unknown]
  - Stomatitis [Recovered/Resolved]
  - Sinusitis [Unknown]
  - Bronchitis [Not Recovered/Not Resolved]
  - Cough [Unknown]
  - Blood potassium decreased [Unknown]

NARRATIVE: CASE EVENT DATE: 2018
